FAERS Safety Report 6726208-8 (Version None)
Quarter: 2010Q2

REPORT INFORMATION
  Report Type: 
  Country: None (occurrence: None)
  Receive Date: 20100512
  Receipt Date: 20100428
  Transmission Date: 20101027
  Serious: Yes (Other)
  Sender: FDA-Public Use
  Company Number: DSJ-2010-07008

PATIENT
  Age: 59 Year
  Sex: Male

DRUGS (3)
  1. BENICAR HCT [Suspect]
     Indication: HYPERTENSION
     Dosage: 40/12.5MG (1 IN 1 D), PER ORAL
     Route: 048
     Dates: start: 20091001, end: 20100419
  2. METOFORMIN (METFORMIN) [Concomitant]
  3. AMLODIPINE (AMLODIPINE) (TABLET)` [Concomitant]

REACTIONS (6)
  - ARTERIOSCLEROSIS [None]
  - AZOTAEMIA [None]
  - HYPERCHOLESTEROLAEMIA [None]
  - HYPERTENSION [None]
  - HYPERTRIGLYCERIDAEMIA [None]
  - HYPERURICAEMIA [None]
